FAERS Safety Report 8028575-4 (Version None)
Quarter: 2012Q1

REPORT INFORMATION
  Report Type: 
  Country: None (occurrence: None)
  Receive Date: 20120106
  Receipt Date: 20111229
  Transmission Date: 20120608
  Serious: Yes (Other)
  Sender: FDA-Public Use
  Company Number: LK-US-EMD SERONO, INC.-7104331

PATIENT
  Age: 8 Year
  Sex: Male

DRUGS (1)
  1. SAIZEN [Suspect]
     Indication: GROWTH HORMONE DEFICIENCY
     Dosage: 2.9 MG PER WEEK (4 CLICKS PER 6 DAYS)
     Route: 058
     Dates: start: 20111228, end: 20111228

REACTIONS (3)
  - VERTIGO [None]
  - CIRCULATORY COLLAPSE [None]
  - HEART RATE DECREASED [None]
